FAERS Safety Report 5425699-2 (Version None)
Quarter: 2007Q3

REPORT INFORMATION
  Report Type: 
  Country: None (occurrence: None)
  Receive Date: 20070824
  Receipt Date: 20070814
  Transmission Date: 20080115
  Serious: Yes (Other)
  Sender: FDA-Public Use
  Company Number: US-PFIZER INC-2007068790

PATIENT
  Sex: Female
  Weight: 118.18 kg

DRUGS (9)
  1. NEURONTIN [Suspect]
     Indication: PAIN
  2. LYRICA [Suspect]
     Indication: FIBROMYALGIA
     Dates: start: 20070401, end: 20070101
  3. DESMOPRESSIN ACETATE [Concomitant]
     Indication: BLADDER DISORDER
  4. DRUG, UNSPECIFIED [Concomitant]
  5. BACLOFEN [Concomitant]
  6. DOXEPIN HCL [Concomitant]
  7. PRILOSEC [Concomitant]
  8. OXYBUTYNIN CHLORIDE [Concomitant]
     Indication: BLADDER DISORDER
  9. HYOSCYAMINE [Concomitant]
     Indication: BLADDER DISORDER

REACTIONS (3)
  - LOSS OF CONSCIOUSNESS [None]
  - NARCOLEPSY [None]
  - ROAD TRAFFIC ACCIDENT [None]
